FAERS Safety Report 24217473 (Version 1)
Quarter: 2024Q3

REPORT INFORMATION
  Report Type: Spontaneous
  Country: CN (occurrence: CN)
  Receive Date: 20240816
  Receipt Date: 20240816
  Transmission Date: 20241017
  Serious: Yes (Other)
  Sender: SANOFI AVENTIS
  Company Number: CN-SA-SAC20240814000617

PATIENT
  Age: 67 Year
  Sex: Female

DRUGS (2)
  1. OXALIPLATIN [Suspect]
     Active Substance: OXALIPLATIN
     Indication: Pelvic mass
     Dosage: 200 MG, QD
     Route: 041
     Dates: start: 20240719, end: 20240719
  2. CAPECITABINE [Suspect]
     Active Substance: CAPECITABINE
     Indication: Pelvic mass
     Dosage: 6500 MG, TOTAL 1500 MG IN THE MORNING, 1000 MG IN THE EVENING PO
     Route: 048
     Dates: start: 20240719

REACTIONS (5)
  - Hyperpyrexia [Recovering/Resolving]
  - Dizziness [Recovering/Resolving]
  - Headache [Recovering/Resolving]
  - Nausea [Recovering/Resolving]
  - Pyrexia [Recovering/Resolving]

NARRATIVE: CASE EVENT DATE: 20240719
